FAERS Safety Report 21269235 (Version 2)
Quarter: 2022Q4

REPORT INFORMATION
  Report Type: Report from Study
  Country: US (occurrence: US)
  Receive Date: 20220830
  Receipt Date: 20221008
  Transmission Date: 20230112
  Serious: Yes (Other)
  Sender: FDA-Public Use
  Company Number: US-TEVA-2022-US-2068340

PATIENT
  Age: 19 Year
  Sex: Female

DRUGS (2)
  1. CLARAVIS [Suspect]
     Active Substance: ISOTRETINOIN
     Indication: Product used for unknown indication
     Dosage: 40 MILLIGRAM DAILY; FORM STRENGTH AND UNIT DOSE: 40 MG, AVERAGE DAILY DOSE: 60 MG
     Route: 065
     Dates: start: 20220320
  2. CLARAVIS [Suspect]
     Active Substance: ISOTRETINOIN
     Dosage: 80 MILLIGRAM DAILY; FORM STRENGTH AND UNIT DOSE: 40 MG, AVERAGE DAILY DOSE: 40 AND 80 MG
     Route: 065
     Dates: start: 20220330, end: 202208

REACTIONS (1)
  - Unintended pregnancy [Unknown]

NARRATIVE: CASE EVENT DATE: 20220101
